FAERS Safety Report 10177320 (Version 7)
Quarter: 2019Q3

REPORT INFORMATION
  Report Type: Report from Study
  Country: US (occurrence: US)
  Receive Date: 20140516
  Receipt Date: 20190713
  Transmission Date: 20191004
  Serious: Yes (Hospitalization)
  Sender: FDA-Public Use
  Company Number: US-UCBSA-121102

PATIENT
  Age: 51 Year
  Sex: Female
  Weight: 112 kg

DRUGS (28)
  1. ALBUTEROL. [Concomitant]
     Active Substance: ALBUTEROL
  2. CLOTRIMAZOLE. [Concomitant]
     Active Substance: CLOTRIMAZOLE
  3. PROAIR HFA [Concomitant]
     Active Substance: ALBUTEROL SULFATE
  4. CERTOLIZUMAB PEGOL VS PLACEBO [Suspect]
     Active Substance: CERTOLIZUMAB PEGOL
     Indication: ANKYLOSING SPONDYLITIS
     Dosage: 200 MG, UNK
     Route: 058
     Dates: start: 20110908, end: 20140430
  5. MOBIC [Concomitant]
     Active Substance: MELOXICAM
  6. OXYMORPHONE [Concomitant]
     Active Substance: OXYMORPHONE
  7. VITAMIN D [Concomitant]
     Active Substance: VITAMIN D NOS
  8. BENAZEPRIL [Concomitant]
     Active Substance: BENAZEPRIL HYDROCHLORIDE
     Dosage: UNK
  9. GABAPENTIN. [Concomitant]
     Active Substance: GABAPENTIN
  10. NEURONTIN [Concomitant]
     Active Substance: GABAPENTIN
     Dosage: UNK
  11. PREDNISONE. [Concomitant]
     Active Substance: PREDNISONE
     Indication: PNEUMONIA
     Dosage: UNK
  12. SULFA [Concomitant]
     Active Substance: UNSPECIFIED INGREDIENT
  13. ATENOLOL. [Concomitant]
     Active Substance: ATENOLOL
  14. HYDROCODONE BITARTRATE AND ACETAMINOPHEN [Concomitant]
     Active Substance: ACETAMINOPHEN\HYDROCODONE BITARTRATE
  15. TIAGABINE [Concomitant]
     Active Substance: TIAGABINE
  16. DIAZEPAM. [Concomitant]
     Active Substance: DIAZEPAM
  17. DIVALPROEX [Concomitant]
     Active Substance: DIVALPROEX SODIUM
  18. SODIUM CHLORIDE. [Concomitant]
     Active Substance: SODIUM CHLORIDE
  19. MULTIVITAMIN [Concomitant]
     Active Substance: VITAMINS
  20. PREMARIN [Concomitant]
     Active Substance: ESTROGENS, CONJUGATED
     Dosage: UNK
  21. PHENERGAN [Concomitant]
     Active Substance: PROMETHAZINE HYDROCHLORIDE
  22. BACLOFEN. [Concomitant]
     Active Substance: BACLOFEN
  23. ESTROGEN [Concomitant]
     Active Substance: ESTROGENS
  24. FOLIC ACID. [Concomitant]
     Active Substance: FOLIC ACID
  25. TIZANIDINE. [Concomitant]
     Active Substance: TIZANIDINE
     Dosage: UNK
  26. LOTRISONE [Concomitant]
     Active Substance: BETAMETHASONE DIPROPIONATE\CLOTRIMAZOLE
     Dosage: UNK
  27. SEROQUEL [Concomitant]
     Active Substance: QUETIAPINE FUMARATE
  28. PERCOCET [Concomitant]
     Active Substance: ACETAMINOPHEN\OXYCODONE HYDROCHLORIDE
     Dosage: UNK

REACTIONS (1)
  - Pneumonia [Recovering/Resolving]

NARRATIVE: CASE EVENT DATE: 20140428
